FAERS Safety Report 10955974 (Version 2)
Quarter: 2015Q2

REPORT INFORMATION
  Report Type: Spontaneous
  Country: US (occurrence: US)
  Receive Date: 20150326
  Receipt Date: 20150526
  Transmission Date: 20150821
  Serious: No
  Sender: FDA-Public Use
  Company Number: US-JNJFOC-20130520862

PATIENT
  Sex: Male

DRUGS (2)
  1. ETRAVIRINE [Suspect]
     Active Substance: ETRAVIRINE
     Indication: UNEVALUABLE EVENT
     Dosage: FOR 14 DAYS
     Route: 065
  2. S/GSK1265744 (HIV INTEGRASE INHIBITOR) [Suspect]
     Active Substance: CABOTEGRAVIR
     Indication: UNEVALUABLE EVENT
     Dosage: FOR 10 DAYS
     Route: 065

REACTIONS (3)
  - Insomnia [Unknown]
  - Headache [Unknown]
  - Nausea [Unknown]
